FAERS Safety Report 4284997-9 (Version None)
Quarter: 2004Q1

REPORT INFORMATION
  Report Type: 
  Country: None (occurrence: None)
  Receive Date: 20040203
  Receipt Date: 20040203
  Transmission Date: 20041129
  Serious: No
  Sender: FDA-Public Use
  Company Number: None

PATIENT
  Age: 91 Year
  Sex: Male
  Weight: 57 kg

DRUGS (7)
  1. NATRECOR [Suspect]
     Indication: CARDIAC FAILURE CONGESTIVE
     Dosage: 2MCG/KG BOLUS INTRAVENOUS, 0.01MCG/KG QMIN INTRAVENOUS
     Route: 042
     Dates: start: 20031105, end: 20031105
  2. NATRECOR [Suspect]
     Indication: CARDIAC FAILURE CONGESTIVE
     Dosage: 2MCG/KG BOLUS INTRAVENOUS, 0.01MCG/KG QMIN INTRAVENOUS
     Route: 042
     Dates: start: 20031106, end: 20031106
  3. LEVAQUIN [Concomitant]
  4. LASIX [Concomitant]
  5. DIGOXIN [Concomitant]
  6. FLAGYL [Concomitant]
  7. LOVENOX [Concomitant]

REACTIONS (2)
  - CARDIAC FAILURE CONGESTIVE [None]
  - HYPOTENSION [None]
